FAERS Safety Report 9255810 (Version 1)
Quarter: 2013Q2

REPORT INFORMATION
  Report Type: Spontaneous
  Country: US (occurrence: US)
  Receive Date: 20130425
  Receipt Date: 20130425
  Transmission Date: 20140414
  Serious: No
  Sender: FDA-Public Use
  Company Number: US-ASTRAZENECA-2013SE24488

PATIENT
  Age: 60 Year
  Sex: Female
  Weight: 95.3 kg

DRUGS (5)
  1. ARIMIDEX [Suspect]
     Indication: BREAST CANCER
     Route: 048
     Dates: start: 20121113, end: 20130131
  2. GLIPIZIDE [Concomitant]
  3. GLUCOPHAGE [Concomitant]
  4. VICODIN [Concomitant]
  5. LORAZEPAM [Concomitant]

REACTIONS (11)
  - Pain [Unknown]
  - Impaired healing [Unknown]
  - Blood glucose increased [Unknown]
  - Dry eye [Unknown]
  - Dry mouth [Unknown]
  - Dysgeusia [Unknown]
  - Toothache [Unknown]
  - Skin depigmentation [Unknown]
  - Periarthritis [Unknown]
  - Vaginal discharge [Unknown]
  - Vaginal inflammation [Unknown]
